FAERS Safety Report 19026576 (Version 1)
Quarter: 2021Q1

REPORT INFORMATION
  Report Type: Report from Study
  Country: ES (occurrence: ES)
  Receive Date: 20210318
  Receipt Date: 20210318
  Transmission Date: 20210420
  Serious: Yes (Hospitalization)
  Sender: FDA-Public Use
  Company Number: ES-TAKEDA-ES201619434

PATIENT
  Age: 14 Year
  Sex: Male

DRUGS (4)
  1. IDURSULFASE [Suspect]
     Active Substance: IDURSULFASE
     Dosage: 0.46 MILLIGRAM/KILOGRAM, 1/WEEK
     Route: 041
     Dates: start: 20110216
  2. IDURSULFASE [Suspect]
     Active Substance: IDURSULFASE
     Indication: MUCOPOLYSACCHARIDOSIS II
     Dosage: 0.5 MILLIGRAM/KILOGRAM, 1/WEEK
     Route: 041
     Dates: start: 20150515
  3. IDURSULFASE [Suspect]
     Active Substance: IDURSULFASE
     Dosage: 0.67 MILLIGRAM/KILOGRAM, 1/WEEK
     Dates: start: 20070418
  4. IDURSULFASE [Suspect]
     Active Substance: IDURSULFASE
     Dosage: 0.59 MILLIGRAM/KILOGRAM, 1/WEEK
     Route: 041
     Dates: start: 20130211

REACTIONS (1)
  - Infusion site extravasation [Recovered/Resolved]

NARRATIVE: CASE EVENT DATE: 20160706
